FAERS Safety Report 9199252 (Version 2)
Quarter: 2013Q2

REPORT INFORMATION
  Report Type: Spontaneous
  Country: US (occurrence: None)
  Receive Date: 20130325
  Receipt Date: 20130401
  Transmission Date: 20140414
  Serious: Yes (Hospitalization, Other)
  Sender: FDA-Public Use
  Company Number: 2013US-004548

PATIENT
  Age: 74 Year
  Sex: Female
  Weight: 58.5 kg

DRUGS (11)
  1. OMONTYS [Suspect]
     Indication: NEPHROGENIC ANAEMIA
     Dosage: 3MG, Q 4 WEEKS, INTRAVENOUS
     Route: 042
     Dates: start: 20130125, end: 20130125
  2. SENSIPAR (CINACALCET HYDROCHLORIDE) [Concomitant]
  3. METOPROLOL (METOPROLOL) [Concomitant]
  4. SIMVASTATIN (SIMVASTATIN) [Concomitant]
  5. DOXAZOSIN (DOXAZOSIN) [Concomitant]
  6. HUMALOG (INSULIN LISPRO) [Concomitant]
  7. DIALYVITE (ASCORBIC ACID, BIOTIN, FOLIC ACID, MECOBALAMIN, NICOTINIC ACID, PANTOTHENIC ACID, PYRIDOXINE HYDROCHLORIDE, RIBOFLAVIN, THIAMINE) [Concomitant]
  8. HEPARIN (HEPARIN) [Concomitant]
  9. TYLENOL (PARACETAMOL) [Concomitant]
  10. NITROGLYCERIN (GLYCERYL TRINITRATE) [Concomitant]
  11. NEPROGLYCERIN [Concomitant]

REACTIONS (11)
  - Dyspnoea [None]
  - Loss of consciousness [None]
  - Lip swelling [None]
  - Dysarthria [None]
  - Swollen tongue [None]
  - Swelling face [None]
  - Pulse absent [None]
  - Unresponsive to stimuli [None]
  - Anaphylactic reaction [None]
  - Hypertension [None]
  - Obstructive airways disorder [None]
